FAERS Safety Report 4333830-5 (Version None)
Quarter: 2004Q2

REPORT INFORMATION
  Report Type: 
  Country: None (occurrence: None)
  Receive Date: 20040402
  Receipt Date: 20040323
  Transmission Date: 20050107
  Serious: Yes (Hospitalization, Disabling)
  Sender: FDA-Public Use
  Company Number: 2004AP01905

PATIENT
  Age: 60 Year
  Sex: Male

DRUGS (13)
  1. IRESSA [Suspect]
     Indication: NON-SMALL CELL LUNG CANCER
     Dosage: 250 MG DAILY PO
     Route: 048
     Dates: start: 20040209, end: 20040308
  2. CISPLATIN [Concomitant]
  3. UFT [Concomitant]
  4. RADIATION [Concomitant]
  5. CARBOPLATIN [Concomitant]
  6. PACLITAXEL [Concomitant]
  7. GEMCITABINE [Concomitant]
  8. VINORELBINE TARTRATE [Concomitant]
  9. AMRUBICIN [Concomitant]
  10. MUCOSTA [Concomitant]
  11. CORTRIL [Concomitant]
  12. MYSLEE [Concomitant]
  13. BUP-4 [Concomitant]

REACTIONS (3)
  - CEREBRAL HAEMORRHAGE [None]
  - HYPERTENSION [None]
  - PARALYSIS [None]
